FAERS Safety Report 6052749-5 (Version None)
Quarter: 2009Q1

REPORT INFORMATION
  Report Type: 
  Country: None (occurrence: None)
  Receive Date: 20090127
  Receipt Date: 20090121
  Transmission Date: 20090719
  Serious: Yes (Life-Threatening)
  Sender: FDA-Public Use
  Company Number: JP-BRISTOL-MYERS SQUIBB COMPANY-14482434

PATIENT
  Age: 6 Decade
  Sex: Male

DRUGS (2)
  1. TAXOL [Suspect]
     Indication: NON-SMALL CELL LUNG CANCER
     Dosage: WEEKLY PACLITAXEL 3/4 WEEKS
     Route: 041
  2. PARAPLATIN [Suspect]
     Indication: NON-SMALL CELL LUNG CANCER
     Route: 041

REACTIONS (1)
  - INTERSTITIAL LUNG DISEASE [None]
